FAERS Safety Report 5304315-4 (Version None)
Quarter: 2007Q2

REPORT INFORMATION
  Report Type: 
  Country: None (occurrence: None)
  Receive Date: 20070423
  Receipt Date: 20070412
  Transmission Date: 20071010
  Serious: Yes (Other)
  Sender: FDA-Public Use
  Company Number: PHEH2007US05362

PATIENT
  Age: 70 Year
  Sex: Female

DRUGS (4)
  1. ZELNORM [Suspect]
     Indication: DIVERTICULITIS
     Dosage: 6 MG, BID
     Dates: start: 20061117
  2. ZELNORM [Suspect]
     Dosage: 6 MG, QD
     Route: 048
     Dates: start: 20061101, end: 20070401
  3. LIPITOR [Concomitant]
     Route: 048
  4. AMBIEN [Concomitant]

REACTIONS (1)
  - HYPERTENSION [None]
